FAERS Safety Report 5872292-3 (Version None)
Quarter: 2008Q3

REPORT INFORMATION
  Report Type: 
  Country: None (occurrence: None)
  Receive Date: 20080905
  Receipt Date: 20080703
  Transmission Date: 20090109
  Serious: Yes (Other)
  Sender: FDA-Public Use
  Company Number: JP-SANOFI-SYNTHELABO-A01200802876

PATIENT
  Sex: Male
  Weight: 37 kg

DRUGS (4)
  1. ISOVORIN [Concomitant]
     Route: 042
     Dates: start: 20080121, end: 20080122
  2. FLUOROURACIL [Suspect]
     Dosage: 500 MG/BODY=400 MG/M2 IN BOLUS THEN 800 MG/BODY=640 MG/M2 AS INFUSION
     Route: 041
     Dates: start: 20080121, end: 20080122
  3. BEVACIZUMAB [Suspect]
     Route: 042
     Dates: start: 20080121, end: 20080121
  4. ELPLAT [Suspect]
     Route: 042
     Dates: start: 20080121, end: 20080121

REACTIONS (2)
  - PALMAR-PLANTAR ERYTHRODYSAESTHESIA SYNDROME [None]
  - WHITE BLOOD CELL COUNT DECREASED [None]
